FAERS Safety Report 8113450-7 (Version None)
Quarter: 2012Q1

REPORT INFORMATION
  Report Type: 
  Country: None (occurrence: None)
  Receive Date: 20120203
  Receipt Date: 20120120
  Transmission Date: 20120608
  Serious: Yes (Other)
  Sender: FDA-Public Use
  Company Number: BG-CELGENEUS-022-C5013-11091755

PATIENT
  Sex: Male
  Weight: 89 kg

DRUGS (5)
  1. ASPIRIN [Concomitant]
     Indication: THROMBOSIS PROPHYLAXIS
     Dosage: 100 MILLIGRAM
     Route: 048
     Dates: start: 20090101
  2. LENALIDOMIDE [Suspect]
     Dosage: 2.5 MILLIGRAM
     Route: 048
     Dates: start: 20101101
  3. INSULIN [Concomitant]
     Indication: DIABETES MELLITUS
     Dosage: 1218
     Route: 058
     Dates: start: 20001228
  4. LOSARTAN POTASSIUM [Concomitant]
     Dosage: 150 MILLIGRAM
     Route: 048
     Dates: start: 20090101
  5. LENALIDOMIDE [Suspect]
     Dosage: 2.5 MILLIGRAM
     Route: 048
     Dates: start: 20110705, end: 20110827

REACTIONS (1)
  - BLOOD POTASSIUM INCREASED [None]
